FAERS Safety Report 10932609 (Version 1)
Quarter: 2015Q1

REPORT INFORMATION
  Report Type: Spontaneous
  Country: US (occurrence: None)
  Receive Date: 20150319
  Receipt Date: 20150319
  Transmission Date: 20150721
  Serious: Yes (Hospitalization)
  Sender: FDA-Public Use
  Company Number: None

PATIENT
  Age: 80 Year
  Sex: Male
  Weight: 74.7 kg

DRUGS (2)
  1. ACETAMINOPHEN/HYDROCODONE [Suspect]
     Active Substance: ACETAMINOPHEN\HYDROCODONE
     Dosage: 10/325 MG OTHER PO
     Route: 048
     Dates: start: 20150123, end: 20150204
  2. ACETAMINOPHEN/HYDROCODONE [Suspect]
     Active Substance: ACETAMINOPHEN\HYDROCODONE
     Indication: PROCEDURAL PAIN
     Dosage: 10/325 MG OTHER PO
     Route: 048
     Dates: start: 20150123, end: 20150204

REACTIONS (10)
  - Mental status changes [None]
  - Delirium [None]
  - Drug withdrawal syndrome [None]
  - Blood alkaline phosphatase increased [None]
  - Flashback [None]
  - Liver function test abnormal [None]
  - Vascular dementia [None]
  - Agitation [None]
  - Hallucinations, mixed [None]
  - Insomnia [None]

NARRATIVE: CASE EVENT DATE: 20150124
